FAERS Safety Report 25160699 (Version 6)
Quarter: 2025Q3

REPORT INFORMATION
  Report Type: Spontaneous
  Country: CA (occurrence: CA)
  Receive Date: 20250404
  Receipt Date: 20250903
  Transmission Date: 20251021
  Serious: Yes (Other)
  Sender: CELLTRION
  Company Number: CA-CELLTRION INC.-2025CA010176

PATIENT

DRUGS (5)
  1. STEQEYMA [Suspect]
     Active Substance: USTEKINUMAB-STBA
     Indication: Colitis ulcerative
     Route: 042
     Dates: start: 20250130
  2. STEQEYMA [Suspect]
     Active Substance: USTEKINUMAB-STBA
     Route: 042
  3. STEQEYMA [Suspect]
     Active Substance: USTEKINUMAB-STBA
     Indication: Colitis ulcerative
     Route: 058
     Dates: start: 20250327
  4. STEQEYMA [Suspect]
     Active Substance: USTEKINUMAB-STBA
     Dosage: 90 MG Q 4 WEEKS
     Route: 058
     Dates: start: 20250814
  5. STEQEYMA [Suspect]
     Active Substance: USTEKINUMAB-STBA
     Route: 058

REACTIONS (3)
  - Colitis ulcerative [Not Recovered/Not Resolved]
  - Intentional product use issue [Not Recovered/Not Resolved]
  - Intentional product use issue [Unknown]

NARRATIVE: CASE EVENT DATE: 20250130
